FAERS Safety Report 8448713-9 (Version None)
Quarter: 2012Q2

REPORT INFORMATION
  Report Type: 
  Country: None (occurrence: None)
  Receive Date: 20120619
  Receipt Date: 20120605
  Transmission Date: 20120825
  Serious: Yes (Other)
  Sender: FDA-Public Use
  Company Number: AU-NOVEN-12AU004769

PATIENT
  Age: 35 Year
  Sex: Male

DRUGS (2)
  1. UNKNOWN [Concomitant]
  2. PAROXETINE [Suspect]
     Indication: PRODUCT USED FOR UNKNOWN INDICATION
     Dosage: 20 MG, QD
     Route: 065

REACTIONS (14)
  - IRRITABILITY [None]
  - LIBIDO INCREASED [None]
  - DECREASED INTEREST [None]
  - HOMICIDE [None]
  - SUICIDAL IDEATION [None]
  - TOXICITY TO VARIOUS AGENTS [None]
  - ANGER [None]
  - NIGHTMARE [None]
  - RESTLESSNESS [None]
  - ANXIETY [None]
  - AGGRESSION [None]
  - DELUSION OF GRANDEUR [None]
  - DEPRESSED MOOD [None]
  - AKATHISIA [None]
